FAERS Safety Report 7340333-2 (Version None)
Quarter: 2011Q1

REPORT INFORMATION
  Report Type: 
  Country: None (occurrence: None)
  Receive Date: 20110309
  Receipt Date: 20110228
  Transmission Date: 20110831
  Serious: No
  Sender: FDA-Public Use
  Company Number: US-BIOGENIDEC-2011BI002313

PATIENT
  Age: 41 Year
  Sex: Female

DRUGS (4)
  1. AVONEX [Concomitant]
     Indication: MULTIPLE SCLEROSIS
     Route: 030
     Dates: start: 20040329, end: 20050701
  2. TYSABRI [Suspect]
     Indication: MULTIPLE SCLEROSIS
     Route: 042
     Dates: start: 20050216
  3. TYSABRI [Suspect]
     Route: 042
     Dates: start: 20101130, end: 20110228
  4. NORTRYPTILINE [Concomitant]
     Indication: DEPRESSION

REACTIONS (8)
  - HYPOAESTHESIA [None]
  - STRESS [None]
  - PARAESTHESIA [None]
  - DEPRESSION [None]
  - MUSCULAR WEAKNESS [None]
  - SENSATION OF HEAVINESS [None]
  - ASTHENIA [None]
  - HEADACHE [None]
